FAERS Safety Report 10380770 (Version 1)
Quarter: 2014Q3

REPORT INFORMATION
  Report Type: Spontaneous
  Country: IT (occurrence: None)
  Receive Date: 20140808
  Receipt Date: 20140808
  Transmission Date: 20150326
  Serious: Yes (Hospitalization)
  Sender: FDA-Public Use
  Company Number: FK201403139

PATIENT
  Age: 65 Year
  Sex: Male

DRUGS (8)
  1. ERBITUX [Suspect]
     Active Substance: CETUXIMAB
     Indication: COLON CANCER
     Dosage: 400MG, CYCLICAL, INTRAVENOUS DRIP
     Route: 041
     Dates: start: 20140505, end: 20140709
  2. LEVOFOLENE (CALCIUM LEVOFOLINATE) [Concomitant]
  3. ZOFRAN (ONDANSETRON) [Concomitant]
  4. SOLDESAM (DEXAMETHASONE SODIUM PHOSPHATE) [Concomitant]
  5. BLOPRESS (CANDESARTAN CILEXETIL) [Concomitant]
     Active Substance: CANDESARTAN CILEXETIL
  6. FOLINIC ACID (FOLINIC ACID) [Concomitant]
  7. IRINOTECAN [Suspect]
     Active Substance: IRINOTECAN
     Indication: COLON CANCER
     Dosage: 200MG, CYCLICAL INTRAVENOUS DRIP
     Route: 041
     Dates: start: 20140505, end: 20140709
  8. FLUOROURACILE [Suspect]
     Active Substance: FLUOROURACIL
     Indication: COLON CANCER
     Dosage: 3300 MG, CYCLICAL, INTRAVENOUS NOT OTHERWISE SPECIFIED
     Route: 042
     Dates: start: 20140505, end: 20140709

REACTIONS (3)
  - Vomiting [None]
  - Diarrhoea [None]
  - Renal failure acute [None]

NARRATIVE: CASE EVENT DATE: 20140718
